FAERS Safety Report 6771130-4 (Version None)
Quarter: 2010Q2

REPORT INFORMATION
  Report Type: 
  Country: None (occurrence: None)
  Receive Date: 20100614
  Receipt Date: 20100614
  Transmission Date: 20101027
  Serious: Yes (Other)
  Sender: FDA-Public Use
  Company Number: None

PATIENT
  Sex: Male
  Weight: 62.1428 kg

DRUGS (2)
  1. PROCRIT [Suspect]
     Indication: ANAEMIA
     Dosage: 1/MONTH SUBCUT
     Route: 058
     Dates: start: 20100428, end: 20100518
  2. PROCRIT [Suspect]
     Indication: BLOOD CREATININE INCREASED
     Dosage: 1/MONTH SUBCUT
     Route: 058
     Dates: start: 20100428, end: 20100518

REACTIONS (1)
  - OEDEMA PERIPHERAL [None]
